FAERS Safety Report 15101779 (Version 1)
Quarter: 2018Q3

REPORT INFORMATION
  Report Type: Spontaneous
  Country: US (occurrence: US)
  Receive Date: 20180703
  Receipt Date: 20180703
  Transmission Date: 20181010
  Serious: Yes (Other)
  Sender: FDA-Public Use
  Company Number: US-HLSUS-2018-US-000528

PATIENT
  Age: 23 Year
  Sex: Male

DRUGS (3)
  1. CLOZARIL [Suspect]
     Active Substance: CLOZAPINE
  2. FLUVOX [Suspect]
     Active Substance: FLUVOXAMINE MALEATE
  3. INGREZZA [Suspect]
     Active Substance: VALBENAZINE

REACTIONS (4)
  - Catatonia [Unknown]
  - Lethargy [Unknown]
  - Fatigue [Unknown]
  - Heart rate increased [Unknown]
